FAERS Safety Report 23057215 (Version 1)
Quarter: 2023Q4

REPORT INFORMATION
  Report Type: Spontaneous
  Country: ES (occurrence: ES)
  Receive Date: 20231012
  Receipt Date: 20231012
  Transmission Date: 20240110
  Serious: Yes (Death)
  Sender: FDA-Public Use
  Company Number: None

PATIENT
  Age: 62 Year
  Sex: Male
  Weight: 80 kg

DRUGS (2)
  1. CAPECITABINE [Interacting]
     Active Substance: CAPECITABINE
     Indication: Product used for unknown indication
     Dates: start: 20230804, end: 20230817
  2. BRIVUDINE [Interacting]
     Active Substance: BRIVUDINE
     Indication: Herpes zoster
     Dosage: STRENGTH: 125 MG,  TABLETS EFG, 7 TABLETS, 1 TABLET DAILY
     Dates: start: 20230816, end: 20230822

REACTIONS (1)
  - Bone marrow failure [Fatal]

NARRATIVE: CASE EVENT DATE: 20230825
